FAERS Safety Report 4429270-0 (Version None)
Quarter: 2004Q3

REPORT INFORMATION
  Report Type: 
  Country: None (occurrence: None)
  Receive Date: 20040818
  Receipt Date: 20040818
  Transmission Date: 20050211
  Serious: No
  Sender: FDA-Public Use
  Company Number: None

PATIENT
  Age: 92 Year
  Sex: Male
  Weight: 69 kg

DRUGS (1)
  1. MORPHINE SULFATE [Suspect]
     Indication: PAIN
     Dosage: 40 MG/HR IV
     Route: 042
     Dates: start: 20040226, end: 20040227

REACTIONS (2)
  - MEDICATION ERROR [None]
  - OVERDOSE [None]
